FAERS Safety Report 12287109 (Version 1)
Quarter: 2016Q2

REPORT INFORMATION
  Report Type: Spontaneous
  Country: US (occurrence: US)
  Receive Date: 20160420
  Receipt Date: 20160420
  Transmission Date: 20160815
  Serious: Yes (Hospitalization, Other)
  Sender: FDA-Public Use
  Company Number: US-BRISTOL-MYERS SQUIBB COMPANY-BMS-2016-026908

PATIENT
  Sex: Male
  Weight: 79.82 kg

DRUGS (3)
  1. COUMADIN [Suspect]
     Active Substance: WARFARIN SODIUM
     Indication: ATRIAL FIBRILLATION
     Dosage: UNK UNK, QD
     Route: 048
  2. WARFARIN                           /00014802/ [Suspect]
     Active Substance: WARFARIN
     Indication: PRODUCT USED FOR UNKNOWN INDICATION
     Dosage: UNK
     Route: 065
  3. COUMADIN [Suspect]
     Active Substance: WARFARIN SODIUM
     Indication: THROMBOSIS

REACTIONS (12)
  - Knee arthroplasty [Unknown]
  - Hip arthroplasty [Unknown]
  - Hyperkeratosis [Unknown]
  - Shoulder arthroplasty [Unknown]
  - Hospitalisation [Unknown]
  - Diabetes mellitus [Unknown]
  - Pulmonary embolism [Unknown]
  - Drug ineffective [Unknown]
  - Weight decreased [Unknown]
  - Deep vein thrombosis [Unknown]
  - Thrombosis [Unknown]
  - Body height decreased [Unknown]

NARRATIVE: CASE EVENT DATE: 1990
